FAERS Safety Report 13151574 (Version 2)
Quarter: 2017Q1

REPORT INFORMATION
  Report Type: Spontaneous
  Country: JP (occurrence: JP)
  Receive Date: 20170125
  Receipt Date: 20170213
  Transmission Date: 20170428
  Serious: Yes (Life-Threatening)
  Sender: FDA-Public Use
  Company Number: JP-BIOCRYST PHARMACEUTICALS, INC.-2017BCR00017

PATIENT
  Age: 59 Year
  Sex: Female

DRUGS (8)
  1. RAPIACTA [Suspect]
     Active Substance: PERAMIVIR
     Indication: INFLUENZA
     Dosage: 300 MG, UNK
     Route: 042
     Dates: start: 20170111, end: 20170111
  2. BIO-THREE [Concomitant]
     Active Substance: HERBALS
     Indication: ABDOMINAL DISTENSION
     Dosage: 3 G, 1X/DAY
     Route: 048
     Dates: start: 20151015
  3. HUSCODE [Concomitant]
     Active Substance: CHLORPHENIRAMINE MALEAT\DIHYDROCODEINE PHOSPHATE\METHYLEPHEDRINE HYDROCHLORIDE, DL-
     Indication: INFLUENZA
     Dosage: 8 DOSAGE UNITS, 1X/DAY
     Route: 048
     Dates: start: 20170110
  4. AMBROXOL HYDROCHLORIDE [Concomitant]
     Active Substance: AMBROXOL HYDROCHLORIDE
     Indication: INFLUENZA
     Dosage: 45 MG, 1X/DAY
     Route: 048
     Dates: start: 20170110
  5. TSUMURA JINSOIN EXTRACT GRANULES FOR ETHICAL USE [Concomitant]
     Indication: INFLUENZA
     Dosage: 7.5 G, 1X/DAY
     Route: 048
     Dates: start: 20170110, end: 20170111
  6. TRANSAMIN [Concomitant]
     Active Substance: TRANEXAMIC ACID
     Indication: INFLUENZA
     Dosage: 4500 MG, 1X/DAY
     Route: 048
     Dates: start: 20170110, end: 20170111
  7. KOTARO HANGESHASHINTO EXTRACT FINE GRANULES [Concomitant]
     Indication: ABDOMINAL DISTENSION
     Dosage: 7.5 MG, 1X/DAY
     Route: 048
     Dates: start: 20170105
  8. MONTELUKAST SODIUM. [Concomitant]
     Active Substance: MONTELUKAST SODIUM
     Indication: INFLUENZA
     Dosage: 10 MG, 1X/DAY
     Route: 048
     Dates: start: 20170110

REACTIONS (1)
  - Hypotension [Recovered/Resolved]

NARRATIVE: CASE EVENT DATE: 20170111
